FAERS Safety Report 5222871-1 (Version None)
Quarter: 2007Q1

REPORT INFORMATION
  Report Type: 
  Country: None (occurrence: None)
  Receive Date: 20070124
  Receipt Date: 20070112
  Transmission Date: 20070707
  Serious: Yes (Hospitalization)
  Sender: FDA-Public Use
  Company Number: 2007AL000267

PATIENT
  Age: 66 Day

DRUGS (4)
  1. DIGOXIN [Suspect]
     Indication: CARDIAC FAILURE
     Dosage: QD; PO
     Route: 048
  2. FUROSEMIDE [Concomitant]
  3. JOSAMYCIN [Concomitant]
  4. CAPTOPRIL [Concomitant]

REACTIONS (7)
  - BRADYCARDIA [None]
  - DRUG TOXICITY [None]
  - HYPOKALAEMIA [None]
  - LABORATORY TEST ABNORMAL [None]
  - MEAN ARTERIAL PRESSURE DECREASED [None]
  - RESPIRATORY DISTRESS [None]
  - SINOATRIAL BLOCK [None]
